FAERS Safety Report 10094222 (Version 1)
Quarter: 2014Q2

REPORT INFORMATION
  Report Type: Spontaneous
  Country: CA (occurrence: CA)
  Receive Date: 20140422
  Receipt Date: 20140422
  Transmission Date: 20141212
  Serious: Yes (Death)
  Sender: FDA-Public Use
  Company Number: CA-AMGEN-CANSP2014027729

PATIENT
  Age: 85 Year
  Sex: Male

DRUGS (1)
  1. PROLIA [Suspect]
     Indication: BONE DENSITY INCREASED
     Dosage: 60 MG, UNK
     Route: 065
     Dates: start: 20121018

REACTIONS (1)
  - Death [Fatal]
